FAERS Safety Report 9754518 (Version 3)
Quarter: 2013Q4

REPORT INFORMATION
  Report Type: Spontaneous
  Country: JP (occurrence: JP)
  Receive Date: 20131213
  Receipt Date: 20131227
  Transmission Date: 20140711
  Serious: Yes (Life-Threatening, Hospitalization, Other)
  Sender: FDA-Public Use
  Company Number: JP-PFIZER INC-2013356085

PATIENT
  Age: 41 Year
  Sex: Female
  Weight: 52 kg

DRUGS (11)
  1. LYRICA [Suspect]
     Dosage: 75 MG, 2X/DAY
     Route: 048
  2. DIAMOX [Suspect]
     Indication: GLAUCOMA
     Dosage: 125 MG, 2X/DAY
     Route: 048
  3. LANSOPRAZOLE [Concomitant]
     Indication: GASTROOESOPHAGEAL REFLUX DISEASE
     Dosage: 15 MG, 1X/DAY
     Route: 048
  4. GLIMEPIRIDE [Concomitant]
     Indication: DIABETES MELLITUS
     Dosage: 0.5 MG, 1X/DAY
     Route: 048
  5. ATORVASTATIN [Concomitant]
     Indication: DYSLIPIDAEMIA
     Dosage: 10 MG, 1X/DAY
     Route: 048
  6. EQUA [Concomitant]
     Indication: DIABETES MELLITUS
     Dosage: 50 MG, 2X/DAY
     Route: 048
  7. REBAMIPIDE [Concomitant]
     Indication: GASTRITIS
     Dosage: 100 MG, 3X/DAY
     Route: 048
  8. PRIMPERAN [Concomitant]
     Indication: NAUSEA
     Dosage: 5 MG, 3X/DAY
     Route: 048
  9. APIDRA [Concomitant]
     Indication: DIABETES MELLITUS
     Dosage: UNK
     Route: 058
  10. TRESIBA [Concomitant]
     Indication: DIABETES MELLITUS
     Dosage: UNK
     Route: 058
  11. MUCOSTA [Concomitant]
     Indication: DRY EYE
     Dosage: UNK
     Route: 047

REACTIONS (2)
  - Accidental overdose [Unknown]
  - Lactic acidosis [Recovered/Resolved]
